FAERS Safety Report 16011697 (Version 1)
Quarter: 2019Q1

REPORT INFORMATION
  Report Type: Spontaneous
  Country: US (occurrence: US)
  Receive Date: 20190227
  Receipt Date: 20190227
  Transmission Date: 20190418
  Serious: No
  Sender: FDA-Public Use
  Company Number: US-PFIZER INC-2019084312

PATIENT
  Age: 46 Year
  Sex: Female
  Weight: 98.87 kg

DRUGS (1)
  1. BENZATHINE BENZYLPENICILLIN [Suspect]
     Active Substance: PENICILLIN G BENZATHINE
     Dosage: UNK

REACTIONS (2)
  - Drug hypersensitivity [Unknown]
  - Rash [Unknown]
